FAERS Safety Report 7225594-2 (Version None)
Quarter: 2011Q1

REPORT INFORMATION
  Report Type: 
  Country: None (occurrence: None)
  Receive Date: 20110113
  Receipt Date: 20101230
  Transmission Date: 20110831
  Serious: Yes (Hospitalization)
  Sender: FDA-Public Use
  Company Number: US-CELGENEUS-163-21880-10120518

PATIENT
  Sex: Male
  Weight: 79.4 kg

DRUGS (2)
  1. REVLIMID [Suspect]
     Indication: MULTIPLE MYELOMA
     Route: 048
     Dates: start: 20090606, end: 20090708
  2. REVLIMID [Suspect]
     Route: 048
     Dates: start: 20101104

REACTIONS (1)
  - INFECTION [None]
